FAERS Safety Report 5860619-8 (Version None)
Quarter: 2008Q3

REPORT INFORMATION
  Report Type: 
  Country: None (occurrence: None)
  Receive Date: 20080827
  Receipt Date: 20071029
  Transmission Date: 20090109
  Serious: No
  Sender: FDA-Public Use
  Company Number: US-ABBOTT-07P-163-0422568-00

PATIENT
  Sex: Female

DRUGS (8)
  1. COATED PDS [Suspect]
     Indication: CORONARY ARTERY DISEASE
     Dosage: Q HS (ORANGE)
     Route: 048
  2. COATED PDS [Suspect]
     Dosage: WHITE
     Route: 048
     Dates: start: 19990101
  3. WARFARIN SODIUM [Concomitant]
     Indication: DRUG USE FOR UNKNOWN INDICATION
     Dosage: Q HS
  4. PRAVASTATIN SODIUM [Concomitant]
     Indication: DRUG USE FOR UNKNOWN INDICATION
     Dosage: Q HS
  5. QUINAPRIL [Concomitant]
     Indication: BLOOD PRESSURE ABNORMAL
  6. ALPRAZOLAM [Concomitant]
     Indication: DRUG USE FOR UNKNOWN INDICATION
  7. METOPROLOL SUCCINATE [Concomitant]
     Indication: DRUG USE FOR UNKNOWN INDICATION
     Dosage: Q HS
  8. M.V.I. [Concomitant]
     Indication: DRUG USE FOR UNKNOWN INDICATION

REACTIONS (1)
  - FLUSHING [None]
